FAERS Safety Report 21748761 (Version 2)
Quarter: 2023Q4

REPORT INFORMATION
  Report Type: Spontaneous
  Country: US (occurrence: US)
  Receive Date: 20221219
  Receipt Date: 20231108
  Transmission Date: 20240109
  Serious: Yes (Other)
  Sender: FDA-Public Use
  Company Number: US-INCYTE CORPORATION-2022IN012102

PATIENT

DRUGS (2)
  1. JAKAFI [Suspect]
     Active Substance: RUXOLITINIB
     Indication: Myelofibrosis
     Dosage: 10 MILLIGRAM, BID
     Route: 048
     Dates: start: 202201
  2. JAKAFI [Suspect]
     Active Substance: RUXOLITINIB
     Dosage: 2 TABLETS (10MG) IN THE MORNING AND 1 TABLET (5MG) IN THE EVENING)
     Route: 048
     Dates: start: 20220127

REACTIONS (2)
  - Haemorrhage urinary tract [Not Recovered/Not Resolved]
  - Urinary tract infection [Not Recovered/Not Resolved]
